FAERS Safety Report 16742168 (Version 1)
Quarter: 2019Q3

REPORT INFORMATION
  Report Type: Spontaneous
  Country: US (occurrence: US)
  Receive Date: 20190826
  Receipt Date: 20190826
  Transmission Date: 20191005
  Serious: Yes (Hospitalization)
  Sender: FDA-Public Use
  Company Number: US-ENDO PHARMACEUTICALS INC-2019-107475

PATIENT
  Age: 50 Year
  Sex: Male

DRUGS (10)
  1. PROPOFOL. [Concomitant]
     Active Substance: PROPOFOL
     Indication: SEDATIVE THERAPY
  2. LORAZEPAM. [Concomitant]
     Active Substance: LORAZEPAM
     Indication: SEDATIVE THERAPY
  3. DEXMEDETOMIDINE HYDROCHLORIDE. [Suspect]
     Active Substance: DEXMEDETOMIDINE HYDROCHLORIDE
     Indication: AGITATION
     Dosage: UNK UNKNOWN, UNKNOWN
     Route: 065
  4. PIPERACILIN/TAZOBACTAM [Concomitant]
     Active Substance: PIPERACILLIN SODIUM\TAZOBACTAM SODIUM
     Indication: SEPTIC SHOCK
  5. OSELTAMIVIR [Concomitant]
     Active Substance: OSELTAMIVIR
     Indication: SEPTIC SHOCK
  6. AZITHROMYCIN ANHYDROUS. [Concomitant]
     Active Substance: AZITHROMYCIN ANHYDROUS
     Indication: SEPTIC SHOCK
  7. LEVOFLOXACIN. [Concomitant]
     Active Substance: LEVOFLOXACIN
     Indication: LEPTOSPIROSIS
  8. FENTANYL. [Concomitant]
     Active Substance: FENTANYL
     Indication: SEDATIVE THERAPY
  9. VANCOMYCIN [Concomitant]
     Active Substance: VANCOMYCIN
     Indication: SEPTIC SHOCK
  10. MEROPENEM. [Concomitant]
     Active Substance: MEROPENEM
     Indication: LEPTOSPIROSIS

REACTIONS (4)
  - Intestinal perforation [Recovering/Resolving]
  - Intestinal pseudo-obstruction [Recovering/Resolving]
  - Colitis ischaemic [Recovering/Resolving]
  - Off label use [Recovered/Resolved]
